FAERS Safety Report 10308266 (Version 1)
Quarter: 2014Q2

REPORT INFORMATION
  Report Type: Spontaneous
  Country: US (occurrence: None)
  Receive Date: 20140625
  Receipt Date: 20140625
  Transmission Date: 20141212
  Serious: Yes (Life-Threatening, Hospitalization)
  Sender: FDA-Public Use
  Company Number: US-145551

PATIENT
  Age: 79 Year
  Sex: Female
  Weight: 51.8 kg

DRUGS (1)
  1. BOTULISM ANTITOXIN [Suspect]
     Indication: BOTULISM
     Dates: start: 20140611, end: 20140611

REACTIONS (24)
  - Nausea [None]
  - Vomiting [None]
  - Diarrhoea [None]
  - Vision blurred [None]
  - Diplopia [None]
  - Dizziness [None]
  - Dysarthria [None]
  - Dry mouth [None]
  - Dysphagia [None]
  - Dyspnoea [None]
  - Asthenia [None]
  - Fatigue [None]
  - Eyelid ptosis [None]
  - Mydriasis [None]
  - Dysphagia [None]
  - Muscular weakness [None]
  - Monoplegia [None]
  - Hypotension [None]
  - Pulse pressure increased [None]
  - Pyrexia [None]
  - Anaphylactic shock [None]
  - Lip swelling [None]
  - Local swelling [None]
  - Haemodynamic instability [None]
